FAERS Safety Report 7148528-8 (Version None)
Quarter: 2010Q4

REPORT INFORMATION
  Report Type: 
  Country: None (occurrence: None)
  Receive Date: 20101209
  Receipt Date: 20101202
  Transmission Date: 20110411
  Serious: Yes (Other)
  Sender: FDA-Public Use
  Company Number: US-BRISTOL-MYERS SQUIBB COMPANY-15410673

PATIENT
  Age: 80 Year
  Sex: Female

DRUGS (1)
  1. CEPHALEXIN [Suspect]
     Dosage: SECOND DOSE

REACTIONS (1)
  - LICHENOID KERATOSIS [None]
